FAERS Safety Report 7303277-8 (Version None)
Quarter: 2011Q1

REPORT INFORMATION
  Report Type: 
  Country: None (occurrence: None)
  Receive Date: 20110221
  Receipt Date: 20110126
  Transmission Date: 20110831
  Serious: No
  Sender: FDA-Public Use
  Company Number: US-B.I. PHARMACEUTICALS,INC./RIDGEFIELD-2011-BP-02607BP

PATIENT
  Age: 67 Year
  Sex: Female

DRUGS (3)
  1. ZANTAC 75 [Suspect]
     Indication: GASTROOESOPHAGEAL REFLUX DISEASE
     Dosage: 75 MG
     Route: 048
     Dates: start: 20110125
  2. VITAMIN TAB [Concomitant]
     Indication: ROUTINE HEALTH MAINTENANCE
     Route: 048
  3. CALCIUM [Concomitant]
     Indication: ROUTINE HEALTH MAINTENANCE
     Dosage: 1200 MG
     Route: 048

REACTIONS (1)
  - FREQUENT BOWEL MOVEMENTS [None]
